FAERS Safety Report 6940074-7 (Version None)
Quarter: 2010Q3

REPORT INFORMATION
  Report Type: 
  Country: None (occurrence: None)
  Receive Date: 20100825
  Receipt Date: 20100811
  Transmission Date: 20110219
  Serious: Yes (Hospitalization)
  Sender: FDA-Public Use
  Company Number: DE-RANBAXY-2010RR-36301

PATIENT
  Age: 27 Year
  Sex: Female
  Weight: 78 kg

DRUGS (6)
  1. GABAPENTIN [Suspect]
     Indication: SUICIDE ATTEMPT
     Dosage: 56 G, UNK
     Route: 048
  2. TOPIRAMATE [Suspect]
     Indication: SUICIDE ATTEMPT
     Dosage: 2 G, UNK
     Route: 048
  3. ZONISAMIDE [Suspect]
     Dosage: 2.8 G, UNK
     Route: 048
  4. LACOSAMIDE [Suspect]
     Dosage: 12 G, UNK
     Route: 048
  5. CEFOTAXIM [Concomitant]
  6. METRONIDAZOLE [Concomitant]

REACTIONS (9)
  - ACIDOSIS [None]
  - BLOOD PRESSURE DECREASED [None]
  - COMA [None]
  - DRUG TOXICITY [None]
  - ELECTROCARDIOGRAM PR PROLONGATION [None]
  - GRAND MAL CONVULSION [None]
  - OVERDOSE [None]
  - SUICIDE ATTEMPT [None]
  - VOMITING [None]
